FAERS Safety Report 25369212 (Version 3)
Quarter: 2025Q4

REPORT INFORMATION
  Report Type: Report from Study
  Country: CA (occurrence: None)
  Receive Date: 20250528
  Receipt Date: 20251204
  Transmission Date: 20260118
  Serious: Yes (Other)
  Sender: UCB
  Company Number: CA-UCBSA-2025031317

PATIENT

DRUGS (1)
  1. CERTOLIZUMAB PEGOL [Suspect]
     Active Substance: CERTOLIZUMAB PEGOL
     Indication: Rheumatoid arthritis
     Dosage: 200 MILLIGRAM, EV 2 WEEKS(QOW)

REACTIONS (5)
  - Rheumatoid arthritis [Unknown]
  - Joint arthroplasty [Unknown]
  - Chondropathy [Unknown]
  - Therapeutic product effect incomplete [Unknown]
  - Intentional dose omission [Unknown]
